FAERS Safety Report 24851979 (Version 1)
Quarter: 2025Q1

REPORT INFORMATION
  Report Type: Spontaneous
  Country: US (occurrence: US)
  Receive Date: 20250116
  Receipt Date: 20250116
  Transmission Date: 20250409
  Serious: No
  Sender: SK LIFE SCIENCE
  Company Number: US-SK LIFE SCIENCE, INC-SKPVG-2024-002009

PATIENT

DRUGS (4)
  1. XCOPRI [Suspect]
     Active Substance: CENOBAMATE
     Indication: Seizure
     Route: 048
  2. XCOPRI [Suspect]
     Active Substance: CENOBAMATE
     Route: 048
  3. XCOPRI [Suspect]
     Active Substance: CENOBAMATE
     Dosage: 250 MILLIGRAM, QD
     Route: 048
     Dates: start: 202407
  4. KEPPRA [Concomitant]
     Active Substance: LEVETIRACETAM
     Indication: Product used for unknown indication
     Route: 065

REACTIONS (7)
  - Intentional dose omission [Recovered/Resolved]
  - Product use issue [Unknown]
  - Feeling abnormal [Unknown]
  - Drug intolerance [Unknown]
  - Dizziness [Recovered/Resolved]
  - Gait inability [Unknown]
  - Vertigo [Unknown]

NARRATIVE: CASE EVENT DATE: 20240824
